FAERS Safety Report 15188910 (Version 1)
Quarter: 2018Q3

REPORT INFORMATION
  Report Type: Spontaneous
  Country: ES (occurrence: ES)
  Receive Date: 20180724
  Receipt Date: 20180724
  Transmission Date: 20181010
  Serious: Yes (Other)
  Sender: FDA-Public Use
  Company Number: ES-SA-2018SA155844

PATIENT
  Age: 67 Year
  Sex: Female

DRUGS (5)
  1. IRINOTECAN [Concomitant]
     Active Substance: IRINOTECAN
     Dosage: UNK UNK, UNK
     Route: 065
  2. FOLINIC ACID [Concomitant]
     Active Substance: LEUCOVORIN
     Dosage: UNK UNK, UNK
     Route: 065
  3. AFLIBERCEPT [Suspect]
     Active Substance: AFLIBERCEPT
     Dosage: UNK UNK, UNK
     Route: 031
     Dates: start: 201609, end: 201609
  4. AFLIBERCEPT [Suspect]
     Active Substance: AFLIBERCEPT
     Dosage: UNK
     Route: 031
     Dates: start: 20180307, end: 20180307
  5. 5?FLUORACILO [Concomitant]
     Active Substance: FLUOROURACIL

REACTIONS (1)
  - Vitreous floaters [Recovering/Resolving]

NARRATIVE: CASE EVENT DATE: 20180313
